FAERS Safety Report 8410506-6 (Version None)
Quarter: 2012Q2

REPORT INFORMATION
  Report Type: 
  Country: None (occurrence: None)
  Receive Date: 20120529
  Receipt Date: 20001205
  Transmission Date: 20120825
  Serious: Yes (Death, Hospitalization)
  Sender: FDA-Public Use
  Company Number: 02100-USA-00-0347

PATIENT
  Sex: Male

DRUGS (1)
  1. PLETAL [Suspect]
     Dosage: ORAL. DF
     Route: 048
     Dates: start: 20001101, end: 20001101

REACTIONS (2)
  - PANCREATITIS NECROTISING [None]
  - SHOCK [None]
